FAERS Safety Report 17933477 (Version 1)
Quarter: 2020Q2

REPORT INFORMATION
  Report Type: Spontaneous
  Country: US (occurrence: US)
  Receive Date: 20200624
  Receipt Date: 20200624
  Transmission Date: 20200714
  Serious: No
  Sender: FDA-Public Use
  Company Number: US-AUROBINDO-AUR-APL-2020-002240

PATIENT
  Sex: Female

DRUGS (1)
  1. ZOLPIDEM TABLET [Suspect]
     Active Substance: ZOLPIDEM TARTRATE
     Indication: SLEEP DISORDER
     Dosage: 5 MILLIGRAM, TWO TIMES A DAY (10 MG, AS NEEDED)
     Route: 048

REACTIONS (1)
  - Drug ineffective [Unknown]
